FAERS Safety Report 25723802 (Version 2)
Quarter: 2025Q3

REPORT INFORMATION
  Report Type: Spontaneous
  Country: TR (occurrence: TR)
  Receive Date: 20250825
  Receipt Date: 20250930
  Transmission Date: 20251020
  Serious: Yes (Hospitalization)
  Sender: MERCK SHARP & DOHME LLC
  Company Number: TR-009507513-2320087

PATIENT
  Sex: Male
  Weight: 51 kg

DRUGS (29)
  1. PEMBROLIZUMAB [Suspect]
     Active Substance: PEMBROLIZUMAB
     Indication: Non-small cell lung cancer metastatic
     Route: 042
     Dates: start: 20240416, end: 20240416
  2. PEMBROLIZUMAB [Suspect]
     Active Substance: PEMBROLIZUMAB
     Indication: Non-small cell lung cancer metastatic
     Route: 042
     Dates: start: 20240507, end: 20241121
  3. PEMBROLIZUMAB [Suspect]
     Active Substance: PEMBROLIZUMAB
     Indication: Non-small cell lung cancer metastatic
     Route: 042
     Dates: start: 20241217, end: 20241217
  4. CARBOPLATIN [Interacting]
     Active Substance: CARBOPLATIN
     Indication: Non-small cell lung cancer metastatic
     Route: 042
     Dates: start: 20240416, end: 20240416
  5. CARBOPLATIN [Interacting]
     Active Substance: CARBOPLATIN
     Indication: Non-small cell lung cancer metastatic
     Route: 042
     Dates: start: 20240507, end: 20240507
  6. CARBOPLATIN [Interacting]
     Active Substance: CARBOPLATIN
     Indication: Non-small cell lung cancer metastatic
     Route: 042
     Dates: start: 20240524, end: 20240524
  7. CARBOPLATIN [Interacting]
     Active Substance: CARBOPLATIN
     Indication: Non-small cell lung cancer metastatic
     Route: 042
     Dates: start: 20240529, end: 20240529
  8. CARBOPLATIN [Interacting]
     Active Substance: CARBOPLATIN
     Indication: Non-small cell lung cancer metastatic
     Route: 042
     Dates: start: 20240620, end: 20240620
  9. FOLIC ACID [Concomitant]
     Active Substance: FOLIC ACID
     Dates: start: 20240408
  10. NUTRITION PRODUCT [Concomitant]
     Dates: start: 20240425
  11. CODEINE\ETHYLMORPHINE HYDROCHLORIDE [Concomitant]
     Active Substance: CODEINE\ETHYLMORPHINE HYDROCHLORIDE
     Dates: start: 20240508
  12. METOCLOPRAMIDE HYDROCHLORIDE [Concomitant]
     Active Substance: METOCLOPRAMIDE HYDROCHLORIDE
     Dates: start: 20240710
  13. ASPIRIN [Concomitant]
     Active Substance: ASPIRIN
     Dates: start: 20240715
  14. SIPRAKTIN [Concomitant]
     Dates: start: 20240910
  15. BELOC [Concomitant]
     Dates: start: 20240917
  16. IVABRADINE HYDROCHLORIDE [Concomitant]
     Active Substance: IVABRADINE HYDROCHLORIDE
     Dates: start: 20240917
  17. CETRYN [Concomitant]
     Dates: start: 20241001
  18. ELIQUIS [Concomitant]
     Active Substance: APIXABAN
     Dates: start: 20241022
  19. ABOUND [Concomitant]
     Dates: start: 20241023
  20. DUPHALAC BULK [Concomitant]
     Dates: start: 20241211, end: 20241211
  21. PERINDOPRIL [Concomitant]
     Active Substance: PERINDOPRIL
     Dates: start: 2021
  22. PANTO [Concomitant]
     Dates: start: 20240416
  23. METOCLOPRAMIDE [Concomitant]
     Active Substance: METOCLOPRAMIDE
     Dates: start: 20240710
  24. BELOC [Concomitant]
     Dates: start: 20240917
  25. PEMETREXED [Suspect]
     Active Substance: PEMETREXED
     Indication: Non-small cell lung cancer metastatic
     Route: 042
     Dates: start: 20240416, end: 20241121
  26. PEMETREXED [Suspect]
     Active Substance: PEMETREXED
     Indication: Non-small cell lung cancer metastatic
     Route: 042
     Dates: start: 20241217, end: 20241217
  27. COLNAR [Concomitant]
     Dates: start: 2021
  28. PERINDOPRIL [Concomitant]
     Active Substance: PERINDOPRIL
     Dates: start: 2021
  29. PANTOPRAZOLE SODIUM [Concomitant]
     Active Substance: PANTOPRAZOLE SODIUM
     Dates: start: 20240416

REACTIONS (2)
  - Hepatitis [Recovering/Resolving]
  - Pneumonia [Unknown]

NARRATIVE: CASE EVENT DATE: 20241211
